FAERS Safety Report 7447070-4 (Version None)
Quarter: 2011Q2

REPORT INFORMATION
  Report Type: 
  Country: None (occurrence: None)
  Receive Date: 20110429
  Receipt Date: 20110428
  Transmission Date: 20111010
  Serious: Yes (Hospitalization)
  Sender: FDA-Public Use
  Company Number: IT-ABBOTT-11P-083-0719038-00

PATIENT
  Sex: Male

DRUGS (1)
  1. MACLADIN [Suspect]
     Indication: PHARYNGITIS
     Route: 048
     Dates: start: 20110403, end: 20110403

REACTIONS (2)
  - STRABISMUS [None]
  - DIPLOPIA [None]
